FAERS Safety Report 9712647 (Version 2)
Quarter: 2013Q4

REPORT INFORMATION
  Report Type: Spontaneous
  Country: US (occurrence: US)
  Receive Date: 20131126
  Receipt Date: 20131126
  Transmission Date: 20140711
  Serious: Yes (Other)
  Sender: FDA-Public Use
  Company Number: PHEH2013US020923

PATIENT
  Age: 30 Year
  Sex: Female
  Weight: 86.17 kg

DRUGS (4)
  1. GILENYA [Suspect]
     Indication: MULTIPLE SCLEROSIS
     Dosage: 0.5 MG, QD
     Route: 048
     Dates: start: 20130912, end: 20131014
  2. DIAZEPAM [Concomitant]
  3. IBUPROFEN [Concomitant]
  4. ALBUTEROL [Concomitant]

REACTIONS (5)
  - Cholecystitis [Unknown]
  - Diarrhoea [Recovering/Resolving]
  - Condition aggravated [Unknown]
  - Nephrolithiasis [Unknown]
  - Back pain [Recovered/Resolved]
